FAERS Safety Report 18237295 (Version 1)
Quarter: 2020Q3

REPORT INFORMATION
  Report Type: Spontaneous
  Country: CA (occurrence: CA)
  Receive Date: 20200907
  Receipt Date: 20200907
  Transmission Date: 20201103
  Serious: Yes (Hospitalization, Other)
  Sender: FDA-Public Use
  Company Number: CA-ASTRAZENECA-2020SF12621

PATIENT
  Age: 59 Year
  Sex: Female

DRUGS (20)
  1. CBD SOFTGELS (CBD) BY TWEED [Suspect]
     Active Substance: CANNABIDIOL\HERBALS
     Indication: NAUSEA
     Route: 065
  2. HYDROCHLOROTHIAZIDE. [Concomitant]
     Active Substance: HYDROCHLOROTHIAZIDE
  3. BLUE CANNABIS OIL (HYBRID) BY SPECTRUM CANNABIS [Suspect]
     Active Substance: CANNABIDIOL\.DELTA.8-TETRAHYDROCANNABINOL
     Indication: NAUSEA
     Route: 048
  4. VITAMIN B12 [Concomitant]
     Active Substance: CYANOCOBALAMIN
  5. BLUE CANNABIS OIL (HYBRID) BY SPECTRUM CANNABIS [Suspect]
     Active Substance: CANNABIDIOL\.DELTA.8-TETRAHYDROCANNABINOL
     Indication: MUSCLE SPASMS
     Route: 048
  6. CBD SOFTGELS (CBD) BY TWEED [Suspect]
     Active Substance: CANNABIDIOL\HERBALS
     Indication: ANXIETY
     Route: 065
  7. METOCLOPRAMIDE HCL [Concomitant]
     Active Substance: METOCLOPRAMIDE HYDROCHLORIDE
  8. SENNOSIDES. [Concomitant]
     Active Substance: SENNOSIDES
  9. BLUE CANNABIS OIL (HYBRID) BY SPECTRUM CANNABIS [Suspect]
     Active Substance: CANNABIDIOL\.DELTA.8-TETRAHYDROCANNABINOL
     Indication: ANXIETY
     Route: 048
  10. CBD SOFTGELS (CBD) BY TWEED [Suspect]
     Active Substance: CANNABIDIOL\HERBALS
     Indication: SLEEP DISORDER
     Route: 065
  11. CBD SOFTGELS (CBD) BY TWEED [Suspect]
     Active Substance: CANNABIDIOL\HERBALS
     Indication: PAIN
     Route: 065
  12. LEVOTHYROXINE. [Concomitant]
     Active Substance: LEVOTHYROXINE
  13. POTASSIUM CHLORIDE. [Concomitant]
     Active Substance: POTASSIUM CHLORIDE
  14. LYNPARZA [Suspect]
     Active Substance: OLAPARIB
     Indication: CHEMOTHERAPY
     Route: 048
  15. BLUE CANNABIS OIL (HYBRID) BY SPECTRUM CANNABIS [Suspect]
     Active Substance: CANNABIDIOL\.DELTA.8-TETRAHYDROCANNABINOL
     Indication: PAIN
     Route: 048
  16. CBD SOFTGELS (CBD) BY TWEED [Suspect]
     Active Substance: CANNABIDIOL\HERBALS
     Indication: MUSCLE SPASMS
     Route: 065
  17. LYNPARZA [Suspect]
     Active Substance: OLAPARIB
     Indication: CHEMOTHERAPY
     Route: 048
  18. VITAMIN B6 [Concomitant]
     Active Substance: PYRIDOXINE HYDROCHLORIDE
  19. BLUE CANNABIS OIL (HYBRID) BY SPECTRUM CANNABIS [Suspect]
     Active Substance: CANNABIDIOL\.DELTA.8-TETRAHYDROCANNABINOL
     Indication: SLEEP DISORDER
     Route: 048
  20. VITAMIN D3 [Concomitant]
     Active Substance: CHOLECALCIFEROL

REACTIONS (6)
  - Ureteric obstruction [Unknown]
  - Ureteral stent insertion [Unknown]
  - Blood creatinine increased [Unknown]
  - Urinary tract infection [Unknown]
  - Ovarian cancer recurrent [Unknown]
  - Creatinine renal clearance decreased [Unknown]
